FAERS Safety Report 7455534-2 (Version None)
Quarter: 2011Q2

REPORT INFORMATION
  Report Type: 
  Country: None (occurrence: None)
  Receive Date: 20110503
  Receipt Date: 20100621
  Transmission Date: 20111010
  Serious: No
  Sender: FDA-Public Use
  Company Number: US-BAYER-201027219NA

PATIENT
  Sex: Female

DRUGS (1)
  1. YAZ [Suspect]
     Dosage: UNK
     Dates: start: 20100201

REACTIONS (5)
  - DECREASED APPETITE [None]
  - MYALGIA [None]
  - HEADACHE [None]
  - ANGER [None]
  - APHAGIA [None]
